FAERS Safety Report 10089509 (Version 1)
Quarter: 2014Q2

REPORT INFORMATION
  Report Type: Spontaneous
  Country: FR (occurrence: FR)
  Receive Date: 20140421
  Receipt Date: 20140421
  Transmission Date: 20141212
  Serious: Yes (Hospitalization)
  Sender: FDA-Public Use
  Company Number: FR-ELI_LILLY_AND_COMPANY-FR201404002266

PATIENT
  Age: 84 Year
  Sex: Female

DRUGS (14)
  1. ZYPREXA [Suspect]
     Indication: MOOD ALTERED
     Dosage: UNK
     Route: 048
     Dates: start: 201311, end: 20140217
  2. ZYPREXA [Suspect]
     Indication: APATHY
  3. ZYPREXA [Suspect]
     Indication: MOVEMENT DISORDER
  4. ZYPREXA [Suspect]
     Indication: GAIT DISTURBANCE
  5. ZYPREXA [Suspect]
     Indication: FALL
  6. DEPAMIDE [Suspect]
     Indication: DEPRESSION
     Dosage: UNK
     Route: 048
     Dates: start: 201306, end: 201311
  7. DEPAMIDE [Suspect]
     Indication: ABNORMAL BEHAVIOUR
  8. DEPAMIDE [Suspect]
     Indication: AGITATION
  9. DEPAMIDE [Suspect]
     Indication: FALL
  10. BIPERIDYS [Suspect]
     Indication: NAUSEA
     Dosage: ONE TABLET, TID
     Route: 048
     Dates: start: 2009, end: 20140310
  11. KARDEGIC [Concomitant]
     Dosage: UNK
     Route: 065
     Dates: end: 201403
  12. XANAX [Concomitant]
     Route: 065
  13. INEXIUM                            /01479302/ [Concomitant]
     Route: 065
  14. DEBRIDAT [Concomitant]
     Route: 065

REACTIONS (6)
  - Extrapyramidal disorder [Recovering/Resolving]
  - Decreased appetite [Unknown]
  - Aspiration [Unknown]
  - General physical health deterioration [Unknown]
  - Off label use [Unknown]
  - Fall [Unknown]
